FAERS Safety Report 10022934 (Version 1)
Quarter: 2014Q1

REPORT INFORMATION
  Report Type: Spontaneous
  Country: US (occurrence: US)
  Receive Date: 20140319
  Receipt Date: 20140319
  Transmission Date: 20141002
  Serious: No
  Sender: FDA-Public Use
  Company Number: US-SA-2014SA017603

PATIENT
  Sex: Male

DRUGS (1)
  1. NASACORT ALLERGY [Suspect]
     Indication: NASAL CONGESTION
     Dosage: DOSE:2 UNIT(S)
     Route: 045
     Dates: start: 201402

REACTIONS (2)
  - Adverse event [Not Recovered/Not Resolved]
  - Therapeutic response decreased [Unknown]
